FAERS Safety Report 11349127 (Version 1)
Quarter: 2015Q3

REPORT INFORMATION
  Report Type: Spontaneous
  Country: US (occurrence: US)
  Receive Date: 20150807
  Receipt Date: 20150807
  Transmission Date: 20151125
  Serious: No
  Sender: FDA-Public Use
  Company Number: US-AMGEN-USASP2015079313

PATIENT
  Age: 28 Year
  Sex: Female

DRUGS (1)
  1. ENBREL [Suspect]
     Active Substance: ETANERCEPT
     Indication: RHEUMATOID ARTHRITIS
     Dosage: WEEKLY
     Route: 065
     Dates: start: 2013

REACTIONS (12)
  - Injection site swelling [Unknown]
  - Cough [Unknown]
  - Sinusitis [Unknown]
  - Respiratory tract congestion [Unknown]
  - Drug dose omission [Unknown]
  - Nasopharyngitis [Unknown]
  - Injection site reaction [Unknown]
  - Eye infection [Unknown]
  - Sneezing [Unknown]
  - Malaise [Unknown]
  - Fear of injection [Unknown]
  - Injection site erythema [Unknown]
